FAERS Safety Report 9377520 (Version 1)
Quarter: 2013Q3

REPORT INFORMATION
  Report Type: Report from Study
  Country: US (occurrence: US)
  Receive Date: 20130701
  Receipt Date: 20130701
  Transmission Date: 20140515
  Serious: Yes (Death)
  Sender: FDA-Public Use
  Company Number: US-ABBOTT-13P-163-1111257-00

PATIENT
  Age: 78 Year
  Sex: Male

DRUGS (1)
  1. HUMIRA [Suspect]
     Indication: PSORIATIC ARTHROPATHY
     Dates: start: 2011, end: 201305

REACTIONS (4)
  - Cardiac arrest [Fatal]
  - Vascular occlusion [Fatal]
  - Coronary artery occlusion [Fatal]
  - Oxygen consumption decreased [Fatal]
